FAERS Safety Report 11049294 (Version 12)
Quarter: 2021Q3

REPORT INFORMATION
  Report Type: Spontaneous
  Country: US (occurrence: US)
  Receive Date: 20150420
  Receipt Date: 20210913
  Transmission Date: 20211014
  Serious: No
  Sender: FDA-Public Use
  Company Number: US-PFIZER INC-2015130693

PATIENT
  Age: 63 Year
  Sex: Female
  Weight: 63.27 kg

DRUGS (11)
  1. DILANTIN [Suspect]
     Active Substance: PHENYTOIN
     Indication: IDIOPATHIC GENERALISED EPILEPSY
     Dosage: 300 MG ALTERNATING WITH 200 MG
  2. XANAX [Concomitant]
     Active Substance: ALPRAZOLAM
     Dosage: UNK
  3. DILANTIN [Suspect]
     Active Substance: PHENYTOIN
     Indication: SEIZURE
     Dosage: 200 MG, DAILY
     Route: 048
  4. PHENOBARBITAL. [Concomitant]
     Active Substance: PHENOBARBITAL
     Dosage: UNK
  5. DILANTIN [Suspect]
     Active Substance: PHENYTOIN
     Dosage: 200 MG, 1X/DAY
     Route: 048
     Dates: end: 1985
  6. TOPAMAX [Concomitant]
     Active Substance: TOPIRAMATE
     Dosage: UNK
  7. DILANTIN [Suspect]
     Active Substance: PHENYTOIN
     Indication: EPILEPSY
     Dosage: UNK
     Dates: start: 1981
  8. KLONOPIN [Concomitant]
     Active Substance: CLONAZEPAM
     Dosage: UNK
  9. MYSOLINE [Concomitant]
     Active Substance: PRIMIDONE
     Dosage: UNK
  10. NEURONTIN [Concomitant]
     Active Substance: GABAPENTIN
     Dosage: UNK
  11. DEPAKOTE [Concomitant]
     Active Substance: DIVALPROEX SODIUM
     Dosage: UNK

REACTIONS (7)
  - Tooth disorder [Unknown]
  - Insomnia [Unknown]
  - Sleep apnoea syndrome [Not Recovered/Not Resolved]
  - Cough [Unknown]
  - Fall [Unknown]
  - Anxiety [Unknown]
  - Dyspnoea [Unknown]
